FAERS Safety Report 26101628 (Version 1)
Quarter: 2025Q4

REPORT INFORMATION
  Report Type: Report from Study
  Country: MX (occurrence: MX)
  Receive Date: 20251128
  Receipt Date: 20251128
  Transmission Date: 20260118
  Serious: Yes (Other)
  Sender: NOVARTIS
  Company Number: MX-002147023-NVSC2025MX182596

PATIENT
  Sex: Male
  Weight: 74 kg

DRUGS (2)
  1. TASIGNA [Suspect]
     Active Substance: NILOTINIB
     Indication: Chronic myeloid leukaemia
     Dosage: 4 DOSAGE FORM, QD
     Route: 048
  2. TASIGNA [Suspect]
     Active Substance: NILOTINIB
     Dosage: 2 DOSAGE FORM, QD (TAKING THE MEDICATION FOR THE LAST 18 YEARS)
     Route: 048

REACTIONS (3)
  - Myocardial infarction [Unknown]
  - Chest pain [Unknown]
  - Off label use [Unknown]
